FAERS Safety Report 8699021 (Version 3)
Quarter: 2012Q4

REPORT INFORMATION
  Report Type: 
  Country: US (occurrence: US)
  Receive Date: 20120802
  Receipt Date: 20121211
  Transmission Date: 20130627
  Serious: No
  Sender: FDA-Public Use
  Company Number: US-ASTRAZENECA-2012SE51658

PATIENT
  Age: 55 Year
  Sex: Male

DRUGS (4)
  1. NEXIUM [Suspect]
     Route: 048
  2. ZANTAC [Concomitant]
  3. TUMS [Concomitant]
  4. PREVACID [Concomitant]

REACTIONS (6)
  - Gastrooesophageal reflux disease [Unknown]
  - Hernia [Unknown]
  - Influenza [Unknown]
  - Malaise [Unknown]
  - Vomiting [Unknown]
  - Drug dose omission [Unknown]
